FAERS Safety Report 7398929-8 (Version None)
Quarter: 2011Q2

REPORT INFORMATION
  Report Type: 
  Country: None (occurrence: None)
  Receive Date: 20110407
  Receipt Date: 20110329
  Transmission Date: 20111010
  Serious: No
  Sender: FDA-Public Use
  Company Number: US-PFIZER INC-2011047499

PATIENT
  Sex: Female
  Weight: 63 kg

DRUGS (2)
  1. ZYRTEC [Concomitant]
     Indication: HYPERSENSITIVITY
     Dosage: UNK
  2. NORVASC [Suspect]
     Indication: HYPERTENSION
     Dosage: 10 MG, DAILY
     Route: 048
     Dates: start: 20030101

REACTIONS (6)
  - OEDEMA PERIPHERAL [None]
  - DENTAL PLAQUE [None]
  - GINGIVAL RECESSION [None]
  - GINGIVAL SWELLING [None]
  - ALOPECIA [None]
  - DRY EYE [None]
